FAERS Safety Report 17579066 (Version 1)
Quarter: 2020Q1

REPORT INFORMATION
  Report Type: Spontaneous
  Country: US (occurrence: US)
  Receive Date: 20200325
  Receipt Date: 20200325
  Transmission Date: 20200409
  Serious: No
  Sender: FDA-Public Use
  Company Number: US-SHIRE-US202011044

PATIENT
  Sex: Female

DRUGS (1)
  1. HYQVIA [Suspect]
     Active Substance: HUMAN IMMUNOGLOBULIN G\HYALURONIDASE RECOMBINANT HUMAN
     Indication: PRODUCT USED FOR UNKNOWN INDICATION
     Dosage: 50 TO 55 GRAM, EVERY 3 WK
     Route: 065

REACTIONS (7)
  - Myalgia [Unknown]
  - Injection site bruising [Unknown]
  - Injection site extravasation [Unknown]
  - Headache [Unknown]
  - Peripheral swelling [Unknown]
  - Injection site pain [Unknown]
  - Product use complaint [Unknown]
